FAERS Safety Report 9912542 (Version 1)
Quarter: 2014Q1

REPORT INFORMATION
  Report Type: Spontaneous
  Country: US (occurrence: None)
  Receive Date: 20140218
  Receipt Date: 20140218
  Transmission Date: 20141002
  Serious: No
  Sender: FDA-Public Use
  Company Number: None

PATIENT
  Age: 66 Year
  Sex: Male

DRUGS (1)
  1. FORTEO 600 MCG/2.4 ML LILLY [Suspect]
     Indication: OSTEOPOROSIS
     Dosage: 20MCG  DAILY  SQ
     Route: 058
     Dates: start: 20120613, end: 20140206

REACTIONS (3)
  - Headache [None]
  - Weight decreased [None]
  - Decreased appetite [None]
